FAERS Safety Report 7026391-3 (Version None)
Quarter: 2010Q4

REPORT INFORMATION
  Report Type: 
  Country: None (occurrence: None)
  Receive Date: 20101004
  Receipt Date: 20100921
  Transmission Date: 20110411
  Serious: Yes (Hospitalization)
  Sender: FDA-Public Use
  Company Number: DE-JNJFOC-20100805294

PATIENT
  Sex: Female
  Weight: 56 kg

DRUGS (10)
  1. BLINDED; USTEKINUMA [Suspect]
     Route: 042
  2. BLINDED; USTEKINUMA [Suspect]
     Indication: CROHN'S DISEASE
     Route: 042
  3. PLACEBO [Suspect]
     Indication: CROHN'S DISEASE
     Route: 042
  4. USTEKNUMAB-BLINDED [Suspect]
     Indication: CROHN'S DISEASE
     Route: 058
  5. USTEKNUMAB-BLINDED [Suspect]
     Route: 058
  6. PLACEBO [Suspect]
     Route: 058
  7. PLACEBO [Suspect]
     Route: 058
  8. LOPERAMIDE [Concomitant]
     Indication: CROHN'S DISEASE
  9. CIPROFLOXACIN HYDROCHLORIDE [Concomitant]
     Indication: CROHN'S DISEASE
     Route: 048
  10. CLONT [Concomitant]
     Indication: CROHN'S DISEASE
     Route: 048

REACTIONS (1)
  - ABDOMINAL NEOPLASM [None]
